FAERS Safety Report 25659865 (Version 2)
Quarter: 2025Q4

REPORT INFORMATION
  Report Type: Spontaneous
  Country: US (occurrence: US)
  Receive Date: 20250808
  Receipt Date: 20251002
  Transmission Date: 20260118
  Serious: No
  Sender: PFIZER
  Company Number: US-PFIZER INC-202500159115

PATIENT
  Age: 33 Year
  Sex: Female

DRUGS (3)
  1. LITFULO [Suspect]
     Active Substance: RITLECITINIB TOSYLATE
     Indication: Alopecia areata
     Dosage: 50 MG, DAILY
  2. LITFULO [Suspect]
     Active Substance: RITLECITINIB TOSYLATE
     Indication: Dermatitis atopic
  3. LITFULO [Suspect]
     Active Substance: RITLECITINIB TOSYLATE
     Indication: Dermatitis atopic

REACTIONS (4)
  - Anxiety [Unknown]
  - Insomnia [Unknown]
  - Tremor [Unknown]
  - Peripheral swelling [Unknown]
